FAERS Safety Report 14812573 (Version 2)
Quarter: 2018Q3

REPORT INFORMATION
  Report Type: Spontaneous
  Country: US (occurrence: US)
  Receive Date: 20180425
  Receipt Date: 20180715
  Transmission Date: 20181010
  Serious: Yes (Death, Hospitalization)
  Sender: FDA-Public Use
  Company Number: US-JNJFOC-20180416867

PATIENT
  Age: 50 Year
  Sex: Male

DRUGS (1)
  1. XARELTO [Suspect]
     Active Substance: RIVAROXABAN
     Indication: DEEP VEIN THROMBOSIS
     Dosage: 15 MG TWICE A DAY AND 20 MG
     Route: 048
     Dates: start: 20160811, end: 20160816

REACTIONS (1)
  - Tumour haemorrhage [Recovering/Resolving]

NARRATIVE: CASE EVENT DATE: 201608
